FAERS Safety Report 13505108 (Version 1)
Quarter: 2017Q2

REPORT INFORMATION
  Report Type: Spontaneous
  Country: JP (occurrence: US)
  Receive Date: 20170502
  Receipt Date: 20170502
  Transmission Date: 20170830
  Serious: Yes (Death, Hospitalization, Other)
  Sender: FDA-Public Use
  Company Number: JP-KOWA-17US000910

PATIENT
  Age: 77 Year
  Sex: Female

DRUGS (13)
  1. FENOFIBRATE. [Suspect]
     Active Substance: FENOFIBRATE
     Indication: CHYLOTHORAX
  2. CYCLOSPORIN A [Concomitant]
     Active Substance: CYCLOSPORINE
     Indication: DERMATOMYOSITIS
  3. TOLVAPTAN [Concomitant]
     Active Substance: TOLVAPTAN
     Indication: PLEURAL EFFUSION
  4. PLASMA [Concomitant]
     Active Substance: HUMAN PLASMA
     Indication: PLEURAL EFFUSION
  5. BETAMETHASONE. [Concomitant]
     Active Substance: BETAMETHASONE
     Dosage: UNK
  6. CYCLOSPORIN A [Concomitant]
     Active Substance: CYCLOSPORINE
     Indication: PLEURAL EFFUSION
  7. BETAMETHASONE. [Concomitant]
     Active Substance: BETAMETHASONE
     Indication: DERMATOMYOSITIS
     Dosage: 0.1 MG, QD
  8. TACROLIMUS. [Concomitant]
     Active Substance: TACROLIMUS
     Indication: DERMATOMYOSITIS
     Dosage: 3.0 MG, UNK
  9. FUROSEMIDE. [Concomitant]
     Active Substance: FUROSEMIDE
     Indication: DIURETIC THERAPY
  10. FUROSEMIDE. [Concomitant]
     Active Substance: FUROSEMIDE
     Indication: PLEURAL EFFUSION
  11. TOLVAPTAN [Concomitant]
     Active Substance: TOLVAPTAN
     Indication: DIURETIC THERAPY
  12. CYCLOPHOSPHAMIDE ANHYDROUS. [Concomitant]
     Active Substance: CYCLOPHOSPHAMIDE ANHYDROUS
     Indication: DERMATOMYOSITIS
     Dosage: 5000 MG, UNK
     Route: 042
  13. PLASMA [Concomitant]
     Active Substance: HUMAN PLASMA
     Indication: DERMATOMYOSITIS

REACTIONS (13)
  - Interstitial lung disease [None]
  - Dermatomyositis [Fatal]
  - Arthralgia [Fatal]
  - Off label use [Unknown]
  - Rash [Fatal]
  - Cough [Unknown]
  - Condition aggravated [Fatal]
  - Pneumomediastinum [None]
  - Pleural effusion [Fatal]
  - Cardiac failure [Fatal]
  - Myalgia [Fatal]
  - Dyspnoea [Fatal]
  - Chylothorax [Fatal]
